FAERS Safety Report 5639611-4 (Version None)
Quarter: 2008Q1

REPORT INFORMATION
  Report Type: 
  Country: None (occurrence: None)
  Receive Date: 20080131
  Receipt Date: 20071107
  Transmission Date: 20080703
  Serious: Yes (Hospitalization)
  Sender: FDA-Public Use
  Company Number: 163-21880-07110488

PATIENT
  Age: 56 Year
  Sex: Female

DRUGS (10)
  1. REVLIMID [Suspect]
     Indication: MULTIPLE MYELOMA
     Dosage: 10 MG, 21/28 DAYS, ORAL; 3.3333 MG, 1 IN 3 D, ORAL; 5 MG EVERY 3 DAYS, 1 IN 3 D
     Route: 048
     Dates: start: 20070905, end: 20070901
  2. REVLIMID [Suspect]
     Indication: MULTIPLE MYELOMA
     Dosage: 10 MG, 21/28 DAYS, ORAL; 3.3333 MG, 1 IN 3 D, ORAL; 5 MG EVERY 3 DAYS, 1 IN 3 D
     Route: 048
     Dates: start: 20070824, end: 20070905
  3. REVLIMID [Suspect]
     Indication: MULTIPLE MYELOMA
     Dosage: 10 MG, 21/28 DAYS, ORAL; 3.3333 MG, 1 IN 3 D, ORAL; 5 MG EVERY 3 DAYS, 1 IN 3 D
     Route: 048
     Dates: start: 20070901, end: 20070917
  4. VICODIN [Concomitant]
  5. BISACODRYL (BISACODRYL) [Concomitant]
  6. FLUTICASONE (FLUTICASONE) (SPRAY (NOT INHALATION)) [Concomitant]
  7. FAMOTIDINE [Concomitant]
  8. OMEPRAZOLE [Concomitant]
  9. DEXAMETHASONE TAB [Concomitant]
  10. PROCRIT [Concomitant]

REACTIONS (3)
  - BLOOD CREATININE INCREASED [None]
  - NAUSEA [None]
  - RENAL FAILURE [None]
